FAERS Safety Report 6545201-1 (Version None)
Quarter: 2010Q1

REPORT INFORMATION
  Report Type: 
  Country: None (occurrence: None)
  Receive Date: 20100121
  Receipt Date: 20100112
  Transmission Date: 20100710
  Serious: Yes (Hospitalization)
  Sender: FDA-Public Use
  Company Number: FI-ASTRAZENECA-2010SE01356

PATIENT
  Age: 12238 Day
  Sex: Female

DRUGS (4)
  1. SYMBICORT [Suspect]
     Indication: ASTHMA
     Dosage: 2 DOSES 3 TIMES PER DAY
     Route: 055
     Dates: start: 20091201, end: 20091210
  2. SYMBICORT [Suspect]
     Indication: COUGH
     Dosage: 2 DOSES 3 TIMES PER DAY
     Route: 055
     Dates: start: 20091201, end: 20091210
  3. IBUMAX [Concomitant]
     Indication: FLANK PAIN
     Route: 048
     Dates: start: 20091205, end: 20091209
  4. IBUMAX [Concomitant]
     Indication: COUGH
     Route: 048
     Dates: start: 20091205, end: 20091209

REACTIONS (6)
  - COUGH [None]
  - DIZZINESS [None]
  - FATIGUE [None]
  - HYPOAESTHESIA [None]
  - HYPONATRAEMIA [None]
  - NAUSEA [None]
